FAERS Safety Report 8978109 (Version 1)
Quarter: 2012Q4

REPORT INFORMATION
  Report Type: 
  Country: US (occurrence: US)
  Receive Date: 20121221
  Receipt Date: 20121221
  Transmission Date: 20130627
  Serious: Yes (Hospitalization)
  Sender: FDA-Public Use
  Company Number: US-BAYER-2012-133374

PATIENT
  Age: 39 Year
  Sex: Female
  Weight: 106.58 kg

DRUGS (17)
  1. YAZ [Suspect]
     Dosage: UNK
     Dates: start: 20100424, end: 20100715
  2. GIANVI [Suspect]
     Indication: CONTRACEPTION
     Dosage: UNK
     Dates: start: 20100814, end: 20120910
  3. XANAX [Concomitant]
     Indication: ANXIETY
     Dosage: 0.5 mg, UNK
     Route: 048
  4. LEXAPRO [Concomitant]
     Indication: ANXIETY
     Dosage: 60 mg, daily
     Route: 048
  5. MELOXICAM [Concomitant]
     Dosage: 7.5 mg, daily
     Route: 048
  6. AMBIEN [Concomitant]
     Dosage: 5 mg, nightly as needed
     Route: 048
  7. ROBINUL [Concomitant]
     Dosage: 1 mg, TID
     Route: 048
  8. BACLOFEN [Concomitant]
     Indication: AMYOTROPHIC LATERAL SCLEROSIS
     Dosage: 15 mg, TID
     Route: 048
  9. RILUTEK [Concomitant]
     Dosage: 50 mg, every 12 hours
     Route: 048
  10. PROTON PUMP INHIBITORS [Concomitant]
     Indication: HEARTBURN
  11. AVELOX [Concomitant]
     Indication: PNEUMONIA
  12. DUONEB [Concomitant]
  13. MUCINEX [Concomitant]
  14. NITROGLYCERINE [Concomitant]
  15. ANALGESICS [Concomitant]
  16. VICODIN [Concomitant]
  17. DILAUDID [Concomitant]
     Indication: BREAKTHROUGH PAIN

REACTIONS (2)
  - Pulmonary embolism [None]
  - Deep vein thrombosis [None]
